FAERS Safety Report 14588118 (Version 4)
Quarter: 2019Q4

REPORT INFORMATION
  Report Type: Spontaneous
  Country: GB (occurrence: GB)
  Receive Date: 20180301
  Receipt Date: 20191204
  Transmission Date: 20200122
  Serious: Yes (Death)
  Sender: FDA-Public Use
  Company Number: GB-JNJFOC-20180238608

PATIENT
  Age: 32 Year
  Sex: Female
  Weight: 56 kg

DRUGS (13)
  1. HYDROXYZINE [Concomitant]
     Active Substance: HYDROXYZINE HYDROCHLORIDE
  2. CITALOPRAM [Concomitant]
     Active Substance: CITALOPRAM HYDROBROMIDE
  3. RANITIDINE. [Concomitant]
     Active Substance: RANITIDINE
  4. LIGNOCAINE                         /00033401/ [Concomitant]
     Active Substance: LIDOCAINE HYDROCHLORIDE
  5. CYCLIZINE [Concomitant]
     Active Substance: CYCLIZINE
     Indication: PROPHYLAXIS OF NAUSEA AND VOMITING
  6. CETIRIZINE [Concomitant]
     Active Substance: CETIRIZINE HYDROCHLORIDE
     Indication: HYPERSENSITIVITY
     Route: 048
  7. MORPHINE [Concomitant]
     Active Substance: MORPHINE
  8. AMITRIPTYLINE [Concomitant]
     Active Substance: AMITRIPTYLINE
     Indication: ABDOMINAL PAIN
     Route: 048
  9. MATRIFEN [Suspect]
     Active Substance: FENTANYL
     Indication: ABDOMINAL PAIN
     Dosage: 100 MCG/H
     Route: 062
     Dates: start: 2011
  10. BETAHISTINE [Concomitant]
     Active Substance: BETAHISTINE
     Indication: VERTIGO
     Route: 048
  11. PARACETAMOL [Concomitant]
     Active Substance: ACETAMINOPHEN
  12. CLOBAZAM. [Concomitant]
     Active Substance: CLOBAZAM
     Indication: ANXIETY
     Dosage: UNK, BID
     Route: 048
  13. DUROGESIC D-TRANS [Suspect]
     Active Substance: FENTANYL
     Indication: PRODUCT USED FOR UNKNOWN INDICATION
     Route: 062

REACTIONS (6)
  - Accidental overdose [Fatal]
  - Manufacturing production issue [Unknown]
  - Somnolence [Unknown]
  - Toxicity to various agents [Fatal]
  - Product physical issue [Fatal]
  - Product quality issue [Fatal]

NARRATIVE: CASE EVENT DATE: 20150501
